FAERS Safety Report 7054154-1 (Version None)
Quarter: 2010Q4

REPORT INFORMATION
  Report Type: 
  Country: None (occurrence: None)
  Receive Date: 20101020
  Receipt Date: 20101011
  Transmission Date: 20110411
  Serious: Yes (Other)
  Sender: FDA-Public Use
  Company Number: US-TEVA-251199USA

PATIENT
  Sex: Female

DRUGS (1)
  1. SEASONIQUE [Suspect]
     Indication: ORAL CONTRACEPTION
     Route: 048
     Dates: start: 20100701

REACTIONS (4)
  - ABORTION SPONTANEOUS [None]
  - DRUG INEFFECTIVE [None]
  - MIGRAINE [None]
  - PREGNANCY ON CONTRACEPTIVE [None]
